FAERS Safety Report 20721172 (Version 11)
Quarter: 2022Q4

REPORT INFORMATION
  Report Type: Report from Study
  Country: US (occurrence: US)
  Receive Date: 20220418
  Receipt Date: 20221128
  Transmission Date: 20230113
  Serious: Yes (Other)
  Sender: FDA-Public Use
  Company Number: US-NOVARTISTESTPH-NVSC2022US086499

PATIENT
  Age: 59 Year
  Sex: Male
  Weight: 105.23 kg

DRUGS (2)
  1. KESIMPTA [Suspect]
     Active Substance: OFATUMUMAB
     Indication: Multiple sclerosis
     Dosage: 20 MG, QMO
     Route: 058
     Dates: start: 20220329, end: 20220526
  2. KESIMPTA [Suspect]
     Active Substance: OFATUMUMAB
     Dosage: UNK
     Route: 058
     Dates: start: 202210

REACTIONS (10)
  - Localised infection [Unknown]
  - Erythema [Unknown]
  - Peripheral swelling [Unknown]
  - Secretion discharge [Unknown]
  - Multiple sclerosis [Unknown]
  - Mental impairment [Unknown]
  - Asthenia [Unknown]
  - Osteomyelitis [Unknown]
  - Mobility decreased [Unknown]
  - Therapeutic product effect decreased [Not Recovered/Not Resolved]

NARRATIVE: CASE EVENT DATE: 20220301
